FAERS Safety Report 6941543-6 (Version None)
Quarter: 2010Q3

REPORT INFORMATION
  Report Type: 
  Country: None (occurrence: None)
  Receive Date: 20100825
  Receipt Date: 20100817
  Transmission Date: 20110219
  Serious: Yes (Other)
  Sender: FDA-Public Use
  Company Number: EE-AMGEN-KDL432055

PATIENT
  Age: 3 Year
  Sex: Female

DRUGS (4)
  1. ARANESP [Suspect]
     Indication: RENAL FAILURE CHRONIC
     Dates: start: 20100519
  2. ENALAPRIL [Concomitant]
  3. NORVASC [Concomitant]
  4. CALCITRIOL [Concomitant]

REACTIONS (5)
  - HAEMOGLOBIN DECREASED [None]
  - OTITIS MEDIA ACUTE [None]
  - PLATELET COUNT DECREASED [None]
  - RED BLOOD CELL COUNT DECREASED [None]
  - WHITE BLOOD CELL COUNT DECREASED [None]
